FAERS Safety Report 7146509-1 (Version None)
Quarter: 2010Q4

REPORT INFORMATION
  Report Type: 
  Country: None (occurrence: None)
  Receive Date: 20101208
  Receipt Date: 20101130
  Transmission Date: 20110411
  Serious: Yes (Other)
  Sender: FDA-Public Use
  Company Number: IT-PFIZER INC-2010162200

PATIENT
  Age: 76 Year
  Sex: Male

DRUGS (2)
  1. NEURONTIN [Suspect]
     Indication: NEUROPATHY PERIPHERAL
     Dosage: 600 MG, 1X/DAY
     Route: 048
     Dates: start: 20100813, end: 20100819
  2. ACICLOVIR [Concomitant]

REACTIONS (1)
  - HYPERTENSIVE CRISIS [None]
